FAERS Safety Report 15968823 (Version 3)
Quarter: 2019Q1

REPORT INFORMATION
  Report Type: Report from Study
  Country: JP (occurrence: JP)
  Receive Date: 20190215
  Receipt Date: 20190224
  Transmission Date: 20190418
  Serious: Yes (Death, Other)
  Sender: FDA-Public Use
  Company Number: JP-BRISTOL-MYERS SQUIBB COMPANY-BMS-2019-015848

PATIENT
  Age: 64 Year
  Sex: Male
  Weight: 61.8 kg

DRUGS (14)
  1. REGORAFENIB. [Suspect]
     Active Substance: REGORAFENIB
     Indication: PRODUCT USED FOR UNKNOWN INDICATION
     Dosage: 80 MG, EVERYDAY
     Route: 048
     Dates: start: 20180827, end: 20190206
  2. DERMOVATE [Concomitant]
     Active Substance: CLOBETASOL
     Indication: PALMAR-PLANTAR ERYTHRODYSAESTHESIA SYNDROME
     Dosage: UNK UNK, PRN
     Route: 061
     Dates: start: 20180608, end: 201902
  3. URSODEOXYCHOLIC ACID [Concomitant]
     Active Substance: URSODIOL
     Indication: PROPHYLAXIS
     Dosage: 100 MG, Q8H
     Route: 048
     Dates: start: 20180927, end: 201902
  4. LOCOID [Concomitant]
     Active Substance: HYDROCORTISONE BUTYRATE
     Indication: RASH
     Dosage: UNK UNK, PRN
     Route: 061
     Dates: start: 20190104, end: 201902
  5. CELESTAMINE [Concomitant]
     Active Substance: BETAMETHASONE\DEXCHLORPHENIRAMINE MALEATE
     Indication: STOMATITIS
     Dosage: 1 DF, Q12H
     Route: 048
     Dates: start: 20181224, end: 201902
  6. REGORAFENIB. [Suspect]
     Active Substance: REGORAFENIB
     Indication: PRODUCT USED FOR UNKNOWN INDICATION
     Dosage: UNK
     Route: 065
  7. DERMOVATE [Concomitant]
     Active Substance: CLOBETASOL
     Indication: PALMAR-PLANTAR ERYTHRODYSAESTHESIA SYNDROME
     Route: 065
  8. NIVOLUMAB [Suspect]
     Active Substance: NIVOLUMAB
     Indication: METASTATIC NEOPLASM
     Dosage: 172.2 MG, UNK
     Route: 041
     Dates: start: 20180531, end: 20190131
  9. BLOPRESS [Concomitant]
     Active Substance: CANDESARTAN CILEXETIL
     Indication: HYPERTENSION
     Dosage: 4 MG, EVERYDAY
     Route: 048
     Dates: start: 20181108, end: 201902
  10. REGORAFENIB. [Suspect]
     Active Substance: REGORAFENIB
     Indication: GASTRIC CANCER
     Dosage: UNK
     Route: 065
     Dates: start: 20180531
  11. MOSAPRIDE CITRATE [Concomitant]
     Active Substance: MOSAPRIDE CITRATE
     Indication: GASTRITIS PROPHYLAXIS
     Dosage: 5 MG, Q8H
     Route: 048
     Dates: start: 201612, end: 201902
  12. LENDORMIN D [Concomitant]
     Active Substance: BROTIZOLAM
     Indication: INSOMNIA
     Dosage: 0.25 MG, EVERYDAY
     Route: 048
     Dates: start: 201612, end: 201902
  13. REGORAFENIB. [Suspect]
     Active Substance: REGORAFENIB
     Indication: PRODUCT USED FOR UNKNOWN INDICATION
     Dosage: 120 MG, EVERYDAY
     Route: 048
     Dates: start: 20180531, end: 20180816
  14. ANTEBATE [Concomitant]
     Active Substance: BETAMETHASONE DIPROPIONATE
     Indication: RASH
     Dosage: UNK UNK, PRN
     Route: 061
     Dates: start: 20190117, end: 201902

REACTIONS (1)
  - Death [Fatal]

NARRATIVE: CASE EVENT DATE: 20190213
